FAERS Safety Report 6377522-X (Version None)
Quarter: 2009Q3

REPORT INFORMATION
  Report Type: 
  Country: None (occurrence: None)
  Receive Date: 20090925
  Receipt Date: 20090918
  Transmission Date: 20100115
  Serious: Yes (Life-Threatening, Hospitalization, Other)
  Sender: FDA-Public Use
  Company Number: IT-CELGENEUS-083-20785-09091459

PATIENT
  Sex: Female

DRUGS (3)
  1. THALIDOMIDE [Suspect]
     Indication: MULTIPLE MYELOMA
     Route: 048
  2. THALIDOMIDE [Suspect]
     Dosage: DOSE REDUCED
     Route: 048
  3. NEXIUM [Concomitant]
     Indication: PROPHYLAXIS
     Route: 065

REACTIONS (2)
  - ANAPHYLACTIC SHOCK [None]
  - RASH [None]
